FAERS Safety Report 7354350-X (Version None)
Quarter: 2011Q1

REPORT INFORMATION
  Report Type: 
  Country: None (occurrence: None)
  Receive Date: 20110316
  Receipt Date: 20110304
  Transmission Date: 20110831
  Serious: Yes (Hospitalization, Other)
  Sender: FDA-Public Use
  Company Number: AU-JNJFOC-20110100918

PATIENT
  Sex: Male
  Weight: 97 kg

DRUGS (1)
  1. STELARA [Suspect]
     Indication: PSORIASIS
     Route: 058

REACTIONS (4)
  - UPPER LIMB FRACTURE [None]
  - FALL [None]
  - JOINT DISLOCATION [None]
  - CONVULSION [None]
